FAERS Safety Report 7601293-X (Version None)
Quarter: 2011Q3

REPORT INFORMATION
  Report Type: 
  Country: None (occurrence: None)
  Receive Date: 20110711
  Receipt Date: 20110629
  Transmission Date: 20111222
  Serious: Yes (Life-Threatening, Hospitalization)
  Sender: FDA-Public Use
  Company Number: US-JNJFOC-20110700370

PATIENT
  Age: 55 Year
  Sex: Male

DRUGS (20)
  1. ISENTRESS [Suspect]
     Route: 048
     Dates: start: 20060421, end: 20070923
  2. LAMIVUDINE [Suspect]
     Indication: HIV INFECTION
     Route: 048
     Dates: start: 20060421
  3. BENZONATATE [Concomitant]
     Route: 065
     Dates: start: 20080118
  4. FAMOTIDINE [Concomitant]
     Route: 065
     Dates: start: 20051130
  5. DARUNAVIR ETHANOLATE [Suspect]
     Indication: HIV INFECTION
     Route: 048
     Dates: start: 20070924
  6. TIPRANAVIR [Suspect]
     Indication: HIV INFECTION
     Route: 048
     Dates: start: 20060412, end: 20070923
  7. MARAVIROC [Suspect]
     Indication: HIV INFECTION
     Route: 048
     Dates: start: 20070924
  8. RITONAVIR [Suspect]
     Route: 048
     Dates: start: 20060421, end: 20070923
  9. DIGOXIN [Concomitant]
     Route: 065
     Dates: start: 20070206
  10. ROSUVASTATIN CALCIUM [Concomitant]
     Route: 065
     Dates: start: 20070915
  11. ISENTRESS [Suspect]
     Indication: HIV INFECTION
     Route: 048
     Dates: start: 20070924
  12. RITONAVIR [Suspect]
     Indication: HIV INFECTION
     Route: 048
     Dates: start: 20070924
  13. LISINOPRIL [Concomitant]
     Route: 065
     Dates: start: 20000701
  14. VALACYCLOVIR HYDROCHLORIDE [Concomitant]
     Route: 065
     Dates: start: 20070206
  15. ALBUTEROL SULFATE AUTOHALER [Concomitant]
     Route: 065
     Dates: start: 20071009
  16. AZELASTINE HCL [Concomitant]
     Route: 065
     Dates: start: 20080118
  17. HYDROCHLOROTHIAZIDE [Concomitant]
     Route: 065
     Dates: start: 20000701
  18. TENOFOVIR DISOPROXIL FUMARATE [Suspect]
     Indication: HIV INFECTION
     Route: 048
     Dates: start: 20051130
  19. SILDENAFIL CITRATE [Concomitant]
     Route: 065
     Dates: start: 20050701
  20. SOTALOL HYDROCHLORIDE [Concomitant]
     Route: 065
     Dates: start: 20070205, end: 20080503

REACTIONS (3)
  - DYSPNOEA [None]
  - PNEUMONIA [None]
  - ATRIAL FIBRILLATION [None]
